FAERS Safety Report 23847381 (Version 1)
Quarter: 2024Q2

REPORT INFORMATION
  Report Type: Spontaneous
  Country: SK (occurrence: SK)
  Receive Date: 20240513
  Receipt Date: 20240513
  Transmission Date: 20240716
  Serious: Yes (Other)
  Sender: FDA-Public Use
  Company Number: SK-REGENERON PHARMACEUTICALS, INC.-2024-067872

PATIENT
  Sex: Female

DRUGS (1)
  1. LIBTAYO [Suspect]
     Active Substance: CEMIPLIMAB-RWLC
     Indication: Squamous cell carcinoma of skin
     Dosage: UNK

REACTIONS (2)
  - Myxoedema [Unknown]
  - Immune-mediated hypothyroidism [Unknown]
